FAERS Safety Report 15387882 (Version 2)
Quarter: 2018Q4

REPORT INFORMATION
  Report Type: Spontaneous
  Country: ES (occurrence: ES)
  Receive Date: 20180914
  Receipt Date: 20181009
  Transmission Date: 20190204
  Serious: Yes (Death, Hospitalization, Other)
  Sender: FDA-Public Use
  Company Number: ES-BRISTOL-MYERS SQUIBB COMPANY-BMS-2018-069021

PATIENT
  Age: 61 Year
  Sex: Male

DRUGS (1)
  1. OPDIVO [Suspect]
     Active Substance: NIVOLUMAB
     Indication: LARYNGEAL CANCER
     Dosage: 195 MG, Q2WK
     Route: 042
     Dates: start: 201801, end: 20180625

REACTIONS (15)
  - Perforation [Fatal]
  - Colitis [Recovering/Resolving]
  - Anaemia [Unknown]
  - Fistula [Unknown]
  - Hypothyroidism [Unknown]
  - Weight decreased [Recovering/Resolving]
  - Acute abdomen [Fatal]
  - Malignant neoplasm progression [Unknown]
  - Metastases to peritoneum [Unknown]
  - Axillary mass [Unknown]
  - Haemorrhage [Unknown]
  - Intra-abdominal haemorrhage [Fatal]
  - Metastases to liver [Unknown]
  - Myalgia [Unknown]
  - Rectal haemorrhage [Unknown]

NARRATIVE: CASE EVENT DATE: 20180702
